FAERS Safety Report 12763015 (Version 1)
Quarter: 2016Q3

REPORT INFORMATION
  Report Type: Report from Study
  Country: BR (occurrence: BR)
  Receive Date: 20160920
  Receipt Date: 20160920
  Transmission Date: 20161109
  Serious: Yes (Hospitalization)
  Sender: FDA-Public Use
  Company Number: PHHY2016BR127608

PATIENT
  Sex: Female

DRUGS (1)
  1. EXJADE [Suspect]
     Active Substance: DEFERASIROX
     Indication: SICKLE CELL ANAEMIA
     Dosage: 625 MG, QD (1 TABLET OF 500 MG AND 1 TABLET OF 125 MG)
     Route: 048

REACTIONS (5)
  - Neck pain [Unknown]
  - Abdominal pain [Unknown]
  - Weight decreased [Unknown]
  - Pyrexia [Unknown]
  - Headache [Unknown]
